FAERS Safety Report 10026732 (Version 1)
Quarter: 2014Q1

REPORT INFORMATION
  Report Type: Spontaneous
  Country: IT (occurrence: None)
  Receive Date: 20140318
  Receipt Date: 20140318
  Transmission Date: 20141002
  Serious: Yes (Death, Disabling)
  Sender: FDA-Public Use
  Company Number: 2014MPI00199

PATIENT
  Sex: Female

DRUGS (1)
  1. BRENTUXIMAB VEDOTIN (BRENTUXIMAB VEDOTIN) INJECTION [Suspect]
     Indication: HODGKIN^S DISEASE

REACTIONS (4)
  - Visual impairment [None]
  - Paraesthesia [None]
  - Nervous system disorder [None]
  - Demyelination [None]
